FAERS Safety Report 13984550 (Version 1)
Quarter: 2017Q3

REPORT INFORMATION
  Report Type: Spontaneous
  Country: RU (occurrence: RU)
  Receive Date: 20170918
  Receipt Date: 20170918
  Transmission Date: 20171128
  Serious: Yes (Life-Threatening)
  Sender: FDA-Public Use
  Company Number: PHHY2017RU137207

PATIENT
  Age: 2 Month
  Sex: Male
  Weight: 3 kg

DRUGS (21)
  1. EDICIN [Suspect]
     Active Substance: VANCOMYCIN HYDROCHLORIDE
     Indication: ENCEPHALITIS
     Dosage: 180 MG, QD
     Route: 042
     Dates: start: 20170821, end: 20170821
  2. SULTASIN [Concomitant]
     Indication: PRODUCT USED FOR UNKNOWN INDICATION
     Route: 042
     Dates: start: 20170626
  3. ERALFON [Concomitant]
     Indication: PRODUCT USED FOR UNKNOWN INDICATION
     Route: 058
     Dates: start: 20170715
  4. METAMIZOL SODIUM [Concomitant]
     Active Substance: METAMIZOL SODIUM
     Indication: HYPERTHERMIA
     Route: 030
     Dates: start: 20170814
  5. URSOFALK [Concomitant]
     Active Substance: URSODIOL
     Indication: PRODUCT USED FOR UNKNOWN INDICATION
     Route: 048
     Dates: start: 20170718
  6. BIFIDUMBACTERIN [Concomitant]
     Indication: DYSBACTERIOSIS
     Route: 048
     Dates: start: 20170814
  7. DEXAMETHASONE. [Concomitant]
     Active Substance: DEXAMETHASONE
     Indication: ENCEPHALITIS
     Route: 042
     Dates: start: 20170821
  8. ACTOVEGIN [Concomitant]
     Active Substance: BLOOD, BOVINE
     Indication: ENCEPHALITIS
     Route: 042
     Dates: start: 20170814
  9. FLUCONAZOLE. [Concomitant]
     Active Substance: FLUCONAZOLE
     Indication: FUNGAL INFECTION
     Route: 042
     Dates: start: 20170814
  10. AMIKACIN [Concomitant]
     Active Substance: AMIKACIN
     Indication: ANTIBIOTIC THERAPY
     Route: 042
     Dates: start: 20170626
  11. ALBUMIN [Concomitant]
     Active Substance: ALBUMIN HUMAN
     Indication: HYPOALBUMINAEMIA
     Route: 042
     Dates: start: 20170814
  12. CEFEPIME [Concomitant]
     Active Substance: CEFEPIME HYDROCHLORIDE
     Indication: ENCEPHALITIS
     Route: 042
     Dates: start: 20170814
  13. SULCEF [Concomitant]
     Active Substance: CEFOPERAZONE\SULBACTAM
     Indication: PRODUCT USED FOR UNKNOWN INDICATION
     Route: 042
     Dates: start: 20170705
  14. URSOFALK [Concomitant]
     Active Substance: URSODIOL
     Route: 048
     Dates: start: 20170814
  15. CAFEINE [Concomitant]
     Active Substance: CAFFEINE
     Indication: PRODUCT USED FOR UNKNOWN INDICATION
     Dosage: UNK
     Route: 058
     Dates: start: 20170626
  16. MAGNESIUM [Concomitant]
     Active Substance: MAGNESIUM
     Indication: REDUCTION OF INCREASED INTRACRANIAL PRESSURE
     Route: 042
     Dates: start: 20170814
  17. AMPICILLIN [Concomitant]
     Active Substance: AMPICILLIN
     Indication: ENCEPHALITIS
     Route: 042
     Dates: start: 20170814
  18. GLUCOSE [Concomitant]
     Active Substance: DEXTROSE
     Indication: DETOXIFICATION
     Route: 042
     Dates: start: 20170814
  19. GLUCOSE [Concomitant]
     Active Substance: DEXTROSE
     Dosage: UNK
     Route: 042
     Dates: start: 20170821
  20. MERONEM [Concomitant]
     Active Substance: MEROPENEM
     Indication: ENCEPHALITIS
     Route: 042
     Dates: start: 20170821
  21. INTRATECT [Concomitant]
     Active Substance: HUMAN IMMUNOGLOBULIN G
     Indication: ENCEPHALITIS
     Route: 042
     Dates: start: 20170817

REACTIONS (4)
  - Dyspnoea [Not Recovered/Not Resolved]
  - Lethargy [Not Recovered/Not Resolved]
  - Livedo reticularis [Not Recovered/Not Resolved]
  - Hypotonia [Not Recovered/Not Resolved]

NARRATIVE: CASE EVENT DATE: 20170821
